FAERS Safety Report 18765946 (Version 1)
Quarter: 2021Q1

REPORT INFORMATION
  Report Type: Spontaneous
  Country: FR (occurrence: FR)
  Receive Date: 20210121
  Receipt Date: 20210121
  Transmission Date: 20210419
  Serious: Yes (Hospitalization)
  Sender: FDA-Public Use
  Company Number: FR-ABBVIE-21K-056-3739180-00

PATIENT
  Age: 83 Year
  Sex: Female

DRUGS (1)
  1. VENCLYXTO [Suspect]
     Active Substance: VENETOCLAX
     Indication: PRODUCT USED FOR UNKNOWN INDICATION
     Route: 048

REACTIONS (2)
  - Fall [Unknown]
  - Injury [Unknown]
